FAERS Safety Report 18808820 (Version 1)
Quarter: 2021Q1

REPORT INFORMATION
  Report Type: Report from Study
  Country: GB (occurrence: GB)
  Receive Date: 20210129
  Receipt Date: 20210129
  Transmission Date: 20210419
  Serious: Yes (Other)
  Sender: FDA-Public Use
  Company Number: GB-TEVA-2021-GB-1873935

PATIENT
  Age: 56 Year
  Sex: Female

DRUGS (1)
  1. AJOVY [Suspect]
     Active Substance: FREMANEZUMAB-VFRM
     Indication: MIGRAINE
     Route: 058

REACTIONS (6)
  - Discomfort [Unknown]
  - Bladder spasm [Unknown]
  - Constipation [Unknown]
  - Urinary retention [Unknown]
  - Renal pain [Unknown]
  - Groin pain [Unknown]

NARRATIVE: CASE EVENT DATE: 20210113
